FAERS Safety Report 7540024-9 (Version None)
Quarter: 2011Q2

REPORT INFORMATION
  Report Type: 
  Country: None (occurrence: None)
  Receive Date: 20110610
  Receipt Date: 20110527
  Transmission Date: 20111010
  Serious: No
  Sender: FDA-Public Use
  Company Number: US-B.I. PHARMACEUTICALS,INC./RIDGEFIELD-2011-BP-07979BP

PATIENT
  Age: 78 Year
  Sex: Male

DRUGS (7)
  1. PRADAXA [Suspect]
     Indication: ATRIAL FIBRILLATION
     Dosage: 300 MG
     Route: 048
     Dates: start: 20110201, end: 20110309
  2. CARDIZEM [Concomitant]
  3. HYDROCHLOROTHIAZIDE [Concomitant]
     Indication: HYPERTENSION
     Dosage: 25 MG
  4. NIACIN [Concomitant]
     Dosage: 1500 MG
  5. TIAZAC [Concomitant]
     Dosage: 240 MG
  6. LIPITOR [Concomitant]
     Indication: BLOOD CHOLESTEROL INCREASED
     Dosage: 5 MG
  7. VITAMIN B-12 [Concomitant]

REACTIONS (6)
  - FEELING ABNORMAL [None]
  - DYSPNOEA [None]
  - DIZZINESS [None]
  - ASTHENIA [None]
  - NAUSEA [None]
  - FATIGUE [None]
